FAERS Safety Report 22157235 (Version 2)
Quarter: 2023Q2

REPORT INFORMATION
  Report Type: Report from Study
  Country: US (occurrence: US)
  Receive Date: 20230330
  Receipt Date: 20230519
  Transmission Date: 20230721
  Serious: Yes (Other)
  Sender: FDA-Public Use
  Company Number: US-ABBVIE-4706802

PATIENT
  Sex: Female

DRUGS (2)
  1. RINVOQ [Suspect]
     Active Substance: UPADACITINIB
     Indication: Rheumatoid arthritis
     Route: 048
     Dates: start: 20220823
  2. IRON [Concomitant]
     Active Substance: IRON
     Indication: Product used for unknown indication

REACTIONS (6)
  - Haemorrhoids [Unknown]
  - Haemorrhoids [Unknown]
  - Anaemia [Unknown]
  - Weight increased [Unknown]
  - Haematochezia [Unknown]
  - Dental prosthesis placement [Unknown]

NARRATIVE: CASE EVENT DATE: 20220101
